FAERS Safety Report 8057576-5 (Version None)
Quarter: 2012Q1

REPORT INFORMATION
  Report Type: 
  Country: None (occurrence: None)
  Receive Date: 20120120
  Receipt Date: 20120110
  Transmission Date: 20120608
  Serious: Yes (Hospitalization)
  Sender: FDA-Public Use
  Company Number: US-BIOGENIDEC-2011BI037397

PATIENT
  Age: 36 Year
  Sex: Male

DRUGS (3)
  1. TYSABRI [Suspect]
     Indication: MULTIPLE SCLEROSIS
     Route: 042
     Dates: start: 20080611, end: 20090903
  2. TYSABRI [Suspect]
     Route: 042
     Dates: start: 20101006
  3. BACLOFEN [Concomitant]

REACTIONS (7)
  - FATIGUE [None]
  - DRUG DOSE OMISSION [None]
  - DEVICE BREAKAGE [None]
  - ASTHENIA [None]
  - MEDICAL DEVICE IMPLANTATION [None]
  - MUSCLE SPASTICITY [None]
  - GAIT DISTURBANCE [None]
